FAERS Safety Report 16564892 (Version 2)
Quarter: 2020Q1

REPORT INFORMATION
  Report Type: Spontaneous
  Country: DE (occurrence: DE)
  Receive Date: 20190712
  Receipt Date: 20200116
  Transmission Date: 20200409
  Serious: Yes (Other)
  Sender: FDA-Public Use
  Company Number: DE-AMGEN-DEUNI2019110045

PATIENT
  Sex: Male

DRUGS (2)
  1. PROLIA [Suspect]
     Active Substance: DENOSUMAB
     Indication: PRODUCT USED FOR UNKNOWN INDICATION
     Dosage: UNK
     Route: 065
  2. NIVOLUMAB [Suspect]
     Active Substance: NIVOLUMAB
     Indication: MALIGNANT MELANOMA
     Dosage: 480 MILLIGRAM, Q4WK
     Route: 042
     Dates: start: 20180627

REACTIONS (12)
  - Weight decreased [Recovered/Resolved]
  - Haematoma [Recovered/Resolved]
  - Insomnia [Recovered/Resolved]
  - Cough [Unknown]
  - Hyperthyroidism [Not Recovered/Not Resolved]
  - Iron deficiency anaemia [Recovering/Resolving]
  - Dry skin [Recovered/Resolved]
  - Fatigue [Recovering/Resolving]
  - Decreased appetite [Unknown]
  - Oedema [Recovered/Resolved]
  - Dry mouth [Unknown]
  - Vomiting [Unknown]

NARRATIVE: CASE EVENT DATE: 20180627
